FAERS Safety Report 4822688-3 (Version None)
Quarter: 2005Q4

REPORT INFORMATION
  Report Type: 
  Country: None (occurrence: None)
  Receive Date: 20051108
  Receipt Date: 20051101
  Transmission Date: 20060501
  Serious: Yes (Other)
  Sender: FDA-Public Use
  Company Number: GB-GLAXOSMITHKLINE-B0399058A

PATIENT
  Age: 25 Year
  Sex: Female
  Weight: 41 kg

DRUGS (2)
  1. PAROXETINE HCL [Suspect]
     Indication: ANXIETY DISORDER
     Dosage: 20MG PER DAY
     Route: 048
     Dates: start: 20050713, end: 20050717
  2. PROPRANOLOL [Concomitant]
     Indication: ANXIETY
     Dosage: 40MG TWICE PER DAY
     Route: 048
     Dates: start: 20050713

REACTIONS (1)
  - SUICIDAL IDEATION [None]
